FAERS Safety Report 11091639 (Version 2)
Quarter: 2015Q4

REPORT INFORMATION
  Report Type: Spontaneous
  Country: IT (occurrence: IT)
  Receive Date: 20150505
  Receipt Date: 20151027
  Transmission Date: 20160304
  Serious: Yes (Other)
  Sender: FDA-Public Use
  Company Number: IT-ELI_LILLY_AND_COMPANY-IT201504008791

PATIENT
  Sex: Female

DRUGS (2)
  1. ZYPREXA [Suspect]
     Active Substance: OLANZAPINE
     Indication: PANIC ATTACK
     Dosage: 15 MG, QD
     Route: 065
  2. ZYPREXA [Suspect]
     Active Substance: OLANZAPINE
     Indication: INSOMNIA
     Dosage: 10 MG, QD
     Route: 065

REACTIONS (8)
  - Flushing [Unknown]
  - Hyperhidrosis [Unknown]
  - Breast neoplasm [Unknown]
  - Depressed mood [Unknown]
  - Ovarian adenoma [Unknown]
  - Off label use [Unknown]
  - Fear [Unknown]
  - Tachycardia [Unknown]
